FAERS Safety Report 5002702-5 (Version None)
Quarter: 2006Q2

REPORT INFORMATION
  Report Type: 
  Country: None (occurrence: None)
  Receive Date: 20060510
  Receipt Date: 20060428
  Transmission Date: 20061013
  Serious: Yes (Hospitalization)
  Sender: FDA-Public Use
  Company Number: 2006054650

PATIENT
  Age: 55 Year
  Sex: Male

DRUGS (3)
  1. MIGLITOL TABLET (MIGLITOL) [Suspect]
     Indication: DIABETES MELLITUS
     Dosage: 150 MG (50 MG, 3 IN 1 D), ORAL
     Route: 048
     Dates: start: 20060224
  2. ALL OTHER THERAPEUTIC PRODUCTS [Concomitant]
  3. PURSENNIDE       (SENNA LEAF) [Concomitant]

REACTIONS (4)
  - ABDOMINAL ADHESIONS [None]
  - CONSTIPATION [None]
  - DIVERTICULITIS [None]
  - MECHANICAL ILEUS [None]
